FAERS Safety Report 8315812 (Version 2)
Quarter: 2013Q4

REPORT INFORMATION
  Report Type: Spontaneous
  Country: US (occurrence: US)
  Receive Date: 20111229
  Receipt Date: 20131121
  Transmission Date: 20140711
  Serious: Yes (Hospitalization)
  Sender: FDA-Public Use
  Company Number: US-GLAXOSMITHKLINE-A0934379A

PATIENT
  Age: 57 Year
  Sex: Female

DRUGS (1)
  1. AVANDIA [Suspect]
     Indication: DIABETES MELLITUS
     Dosage: 8MG PER DAY
     Route: 048
     Dates: start: 200212, end: 201011

REACTIONS (6)
  - Cardiac disorder [Not Recovered/Not Resolved]
  - Coronary artery disease [Unknown]
  - Stent placement [Unknown]
  - Dyspnoea [Unknown]
  - Chest pain [Unknown]
  - Amnesia [Unknown]
